FAERS Safety Report 25085692 (Version 2)
Quarter: 2025Q1

REPORT INFORMATION
  Report Type: Spontaneous
  Country: JP (occurrence: JP)
  Receive Date: 20250317
  Receipt Date: 20250319
  Transmission Date: 20250409
  Serious: Yes (Death, Other)
  Sender: TAKEDA
  Company Number: JP-TAKEDA-2025TUS027230

PATIENT
  Age: 84 Year
  Sex: Male

DRUGS (4)
  1. LANSOPRAZOLE [Suspect]
     Active Substance: LANSOPRAZOLE
     Indication: Upper gastrointestinal haemorrhage
     Dates: start: 20240923, end: 20241122
  2. AMPICILLIN SODIUM\SULBACTAM SODIUM [Concomitant]
     Active Substance: AMPICILLIN SODIUM\SULBACTAM SODIUM
     Indication: Product used for unknown indication
  3. CYANOCOBALAMIN\PYRIDOXINE HYDROCHLORIDE\THIAMINE [Concomitant]
     Active Substance: CYANOCOBALAMIN\PYRIDOXINE HYDROCHLORIDE\THIAMINE
     Indication: Product used for unknown indication
  4. NICARDIPINE [Concomitant]
     Active Substance: NICARDIPINE
     Indication: Product used for unknown indication

REACTIONS (3)
  - Stevens-Johnson syndrome [Fatal]
  - Haemorrhage [Fatal]
  - Product use in unapproved indication [Unknown]

NARRATIVE: CASE EVENT DATE: 20240923
